FAERS Safety Report 6839073-5 (Version None)
Quarter: 2010Q3

REPORT INFORMATION
  Report Type: 
  Country: None (occurrence: None)
  Receive Date: 20100714
  Receipt Date: 20100706
  Transmission Date: 20110219
  Serious: Yes (Hospitalization)
  Sender: FDA-Public Use
  Company Number: US-BIOGENIDEC-2010BI023032

PATIENT
  Age: 62 Year
  Sex: Female

DRUGS (2)
  1. AVONEX [Suspect]
     Indication: MULTIPLE SCLEROSIS
     Route: 030
     Dates: start: 20031121, end: 20060101
  2. AVONEX [Suspect]
     Route: 030
     Dates: start: 20070420

REACTIONS (3)
  - FALL [None]
  - FOOT FRACTURE [None]
  - INFECTION [None]
